FAERS Safety Report 18917427 (Version 1)
Quarter: 2021Q1

REPORT INFORMATION
  Report Type: Report from Study
  Country: US (occurrence: US)
  Receive Date: 20210219
  Receipt Date: 20210219
  Transmission Date: 20210420
  Serious: Yes (Other)
  Sender: FDA-Public Use
  Company Number: US-EMD SERONO-9163024

PATIENT
  Age: 50 Year
  Sex: Female

DRUGS (4)
  1. REBIF [Suspect]
     Active Substance: INTERFERON BETA-1A
     Route: 058
     Dates: start: 20200509
  2. VALIUM [Suspect]
     Active Substance: DIAZEPAM
     Indication: NECK SURGERY
     Dosage: START DATE: MAY 2020
  3. REBIF [Suspect]
     Active Substance: INTERFERON BETA-1A
     Indication: MULTIPLE SCLEROSIS
     Dosage: PREFILLED SYRINGE
     Route: 058
     Dates: start: 20200408, end: 2020
  4. HYDROCODONE [Suspect]
     Active Substance: HYDROCODONE
     Indication: NECK SURGERY
     Dosage: START DATE: MAY 2020

REACTIONS (10)
  - Diarrhoea [Unknown]
  - Hypoaesthesia [Recovering/Resolving]
  - Oedema peripheral [Recovered/Resolved]
  - Neck surgery [Not Recovered/Not Resolved]
  - Influenza like illness [Recovering/Resolving]
  - Procedural pain [Unknown]
  - Sleep disorder [Unknown]
  - Blood pressure increased [Unknown]
  - Gait disturbance [Not Recovered/Not Resolved]
  - Abdominal discomfort [Not Recovered/Not Resolved]

NARRATIVE: CASE EVENT DATE: 2020
